FAERS Safety Report 5531669-6 (Version None)
Quarter: 2007Q4

REPORT INFORMATION
  Report Type: 
  Country: None (occurrence: None)
  Receive Date: 20071128
  Receipt Date: 20071112
  Transmission Date: 20080405
  Serious: Yes (Hospitalization)
  Sender: FDA-Public Use
  Company Number: S07-GER-06054-01

PATIENT
  Age: 28 Year
  Sex: Female

DRUGS (17)
  1. CITALOPRAM HYDROBROMIDE [Suspect]
     Indication: MAJOR DEPRESSION
     Dosage: 80 MG QD PO
     Route: 048
     Dates: start: 20070720
  2. CITALOPRAM HYDROBROMIDE [Suspect]
     Indication: MAJOR DEPRESSION
     Dosage: 20 MG QD PO
     Route: 048
     Dates: start: 20070604, end: 20070702
  3. CITALOPRAM HYDROBROMIDE [Suspect]
     Indication: MAJOR DEPRESSION
     Dosage: 40 MG QD PO
     Route: 048
     Dates: start: 20070703, end: 20070717
  4. CITALOPRAM HYDROBROMIDE [Suspect]
     Indication: MAJOR DEPRESSION
     Dosage: 60 MG QD PO
     Route: 048
     Dates: start: 20070718, end: 20070719
  5. ZIPRASIDONE HCL [Suspect]
     Indication: MAJOR DEPRESSION
     Dosage: 40 MG QD PO
     Route: 048
     Dates: start: 20070720, end: 20070722
  6. ZIPRASIDONE HCL [Suspect]
     Indication: MAJOR DEPRESSION
     Dosage: 80 MG QD PO
     Route: 048
     Dates: start: 20070723, end: 20070729
  7. ZIPRASIDONE HCL [Suspect]
     Indication: MAJOR DEPRESSION
     Dosage: 100 MG QD PO
     Route: 048
     Dates: start: 20070730, end: 20070730
  8. ZIPRASIDONE HCL [Suspect]
     Indication: MAJOR DEPRESSION
     Dosage: 120 MG QD PO
     Route: 048
     Dates: start: 20070731, end: 20070807
  9. ZIPRASIDONE HCL [Suspect]
     Indication: MAJOR DEPRESSION
     Dates: start: 20070808, end: 20070812
  10. ZIPRASIDONE HCL [Suspect]
     Indication: MAJOR DEPRESSION
     Dates: start: 20070813, end: 20070816
  11. ZIPRASIDONE HCL [Suspect]
     Indication: MAJOR DEPRESSION
     Dosage: 20 MG QD PO
     Route: 048
     Dates: start: 20070817, end: 20070822
  12. ZIPRASIDONE HCL [Suspect]
     Indication: MAJOR DEPRESSION
     Dates: start: 20070623, end: 20070705
  13. ZIPRASIDONE HCL [Suspect]
     Indication: MAJOR DEPRESSION
     Dosage: 120 MG QD PO
     Route: 048
     Dates: start: 20070706, end: 20070716
  14. ZIPRASIDONE HCL [Suspect]
     Indication: MAJOR DEPRESSION
     Dates: start: 20070717, end: 20070719
  15. MELNEURIN (MELPERONE HYDROCHLORIDE) [Suspect]
     Indication: MAJOR DEPRESSION
     Dosage: 25 MG QD PO
     Route: 048
     Dates: start: 20070719, end: 20070723
  16. MELNEURIN (MELPERONE HYDROCHLORIDE) [Suspect]
     Indication: MAJOR DEPRESSION
     Dosage: 50 MG QD PO
     Route: 048
     Dates: start: 20070724, end: 20070822
  17. MELNEURIN (MELPERONE HYDROCHLORIDE) [Suspect]
     Indication: MAJOR DEPRESSION
     Dosage: 75 MG QD PO
     Route: 048
     Dates: start: 20070823

REACTIONS (3)
  - DYSKINESIA [None]
  - EMOTIONAL DISTRESS [None]
  - OVERDOSE [None]
